FAERS Safety Report 12283435 (Version 1)
Quarter: 2016Q2

REPORT INFORMATION
  Report Type: Report from Study
  Country: US (occurrence: US)
  Receive Date: 20160419
  Receipt Date: 20160419
  Transmission Date: 20160815
  Serious: Yes (Death, Other)
  Sender: FDA-Public Use
  Company Number: US-GILEAD-2016-0209063

PATIENT
  Age: 88 Year
  Sex: Male

DRUGS (1)
  1. IDELALISIB [Suspect]
     Active Substance: IDELALISIB
     Indication: NEOPLASM
     Dosage: 300 MG, UNK
     Route: 048
     Dates: start: 20150725

REACTIONS (2)
  - Off label use [Unknown]
  - Death [Fatal]
